FAERS Safety Report 7605055-9 (Version None)
Quarter: 2011Q3

REPORT INFORMATION
  Report Type: 
  Country: None (occurrence: None)
  Receive Date: 20110713
  Receipt Date: 20080814
  Transmission Date: 20111222
  Serious: Yes (Death, Other)
  Sender: FDA-Public Use
  Company Number: US-BAYER-200814715NA

PATIENT
  Sex: Male
  Weight: 93.878 kg

DRUGS (36)
  1. OMNISCAN [Suspect]
     Indication: NUCLEAR MAGNETIC RESONANCE IMAGING
  2. COUMADIN [Concomitant]
     Dosage: 5 MG ONCE DAILY
     Route: 048
  3. EPOGEN [Concomitant]
     Dosage: 40,000 UNITS EVER WEEK
     Route: 058
  4. LASIX [Concomitant]
  5. TOPROL-XL [Concomitant]
  6. PHOSLO [Concomitant]
  7. ACETYLSALICYLIC ACID SRT [Concomitant]
     Dosage: 81 MG DAILY
  8. MAGNEVIST [Suspect]
     Indication: NUCLEAR MAGNETIC RESONANCE IMAGING
     Dosage: 20 ML
     Dates: start: 20060323, end: 20060323
  9. MAGNEVIST [Suspect]
     Dosage: 20ML
     Dates: start: 20060502, end: 20060502
  10. OMNISCAN [Suspect]
     Indication: ANGIOGRAM
  11. HECTOROL [Concomitant]
  12. GEMFIBROZIL [Concomitant]
  13. ZOLOFT [Concomitant]
  14. MAGNEVIST [Suspect]
     Dosage: UNK
     Dates: start: 20070522, end: 20070522
  15. PROHANCE [Suspect]
     Indication: NUCLEAR MAGNETIC RESONANCE IMAGING
  16. MULTIHANCE [Suspect]
     Indication: NUCLEAR MAGNETIC RESONANCE IMAGING
  17. OPTIMARK [Suspect]
     Indication: NUCLEAR MAGNETIC RESONANCE IMAGING
  18. NORVASC [Concomitant]
  19. MAGNEVIST [Suspect]
     Indication: ANGIOGRAM
     Dosage: 40 ML
     Dates: start: 20031024, end: 20031024
  20. PROHANCE [Suspect]
     Indication: ANGIOGRAM
  21. DARBEPOETIN ALFA [Concomitant]
  22. ACTOS [Concomitant]
  23. GLIPIZIDE [Concomitant]
  24. DOXAZOSIN MESYLATE [Concomitant]
  25. OPTIMARK [Suspect]
     Indication: ANGIOGRAM
  26. INSULIN INSULATARD NPH NORDISK [Concomitant]
     Dosage: 15 UNITS TWICE DAILY
     Route: 058
  27. LIPITOR [Concomitant]
  28. MULTIHANCE [Suspect]
     Indication: ANGIOGRAM
  29. SYNTHROID [Concomitant]
  30. SENSIPAR [Concomitant]
     Dosage: 60 MG ONCE DAILY
     Route: 048
  31. NEURONTIN [Concomitant]
     Dosage: 200 MG THREE TIMES DAILY
     Route: 048
  32. FELODIPINE [Concomitant]
     Dosage: 10 MG DAILY
     Route: 048
  33. NEPHROVITE [VIT C,VIT H,B5,B12,B9,B3,B6,B2,B1 HCL] [Concomitant]
  34. NIASPAN [Concomitant]
  35. RENAGEL [Concomitant]
  36. LOVASTATIN [Concomitant]

REACTIONS (23)
  - INJURY [None]
  - PAIN [None]
  - MULTI-ORGAN FAILURE [None]
  - MUSCULAR WEAKNESS [None]
  - SEPSIS SYNDROME [None]
  - PNEUMONIA ADENOVIRAL [None]
  - ABASIA [None]
  - DYSPHAGIA [None]
  - PAIN IN EXTREMITY [None]
  - EXTREMITY CONTRACTURE [None]
  - SKIN INDURATION [None]
  - ANHEDONIA [None]
  - HYPERPROLACTINAEMIA [None]
  - MUSCULOSKELETAL STIFFNESS [None]
  - HYPOAESTHESIA [None]
  - PARAESTHESIA [None]
  - ANAEMIA [None]
  - SKIN HYPERTROPHY [None]
  - GYNAECOMASTIA [None]
  - NEPHROGENIC SYSTEMIC FIBROSIS [None]
  - ANXIETY [None]
  - PEAU D'ORANGE [None]
  - EMOTIONAL DISTRESS [None]
